FAERS Safety Report 5989648-0 (Version None)
Quarter: 2008Q4

REPORT INFORMATION
  Report Type: 
  Country: None (occurrence: None)
  Receive Date: 20081208
  Receipt Date: 20081030
  Transmission Date: 20090506
  Serious: Yes (Death, Hospitalization)
  Sender: FDA-Public Use
  Company Number: 2008BM000231

PATIENT
  Age: 9 Year
  Sex: Female
  Weight: 20 kg

DRUGS (1)
  1. KUVAN [Suspect]
     Indication: RABIES
     Dosage: 200 MG;BID;OTH
     Route: 050
     Dates: start: 20080929, end: 20081025

REACTIONS (9)
  - ACCIDENT [None]
  - BRAIN OEDEMA [None]
  - CEREBROVASCULAR ACCIDENT [None]
  - DEHYDRATION [None]
  - HYPOTENSION [None]
  - HYPOXIA [None]
  - ISCHAEMIA [None]
  - OFF LABEL USE [None]
  - PNEUMOTHORAX [None]
